FAERS Safety Report 18001785 (Version 5)
Quarter: 2021Q4

REPORT INFORMATION
  Report Type: Spontaneous
  Country: PL (occurrence: PL)
  Receive Date: 20200709
  Receipt Date: 20211201
  Transmission Date: 20220304
  Serious: Yes (Hospitalization)
  Sender: FDA-Public Use
  Company Number: PL-SA-2020SA161257

PATIENT
  Age: 77 Year
  Sex: Female

DRUGS (4)
  1. GLIMEPIRIDE [Suspect]
     Active Substance: GLIMEPIRIDE
     Indication: Type 2 diabetes mellitus
     Dosage: SEVERAL MONTHS BEFORE THE ADMISSION TO THE HOSPITAL
     Route: 048
  2. RAMIPRIL [Concomitant]
     Active Substance: RAMIPRIL
     Indication: Hypertension
     Dosage: MANY YEARS BEFORE THE ADMISSION TO THE HOSPITAL
     Route: 065
  3. METFORMIN [Concomitant]
     Active Substance: METFORMIN HYDROCHLORIDE
     Indication: Type 2 diabetes mellitus
     Dosage: MANY YEARS BEFORE THE ADMISSION TO THE HOSPITAL
     Route: 065
  4. DABIGATRAN [Concomitant]
     Active Substance: DABIGATRAN
     Indication: Atrial fibrillation
     Dosage: MANY YEARS BEFORE THE ADMISSION TO THE HOSPITAL.
     Route: 065

REACTIONS (5)
  - Pain [Recovered/Resolved]
  - Skin burning sensation [Recovered/Resolved]
  - Skin lesion [Recovered/Resolved]
  - Erythema [Unknown]
  - Photosensitivity reaction [Recovered/Resolved]
